FAERS Safety Report 5302402-8 (Version None)
Quarter: 2007Q2

REPORT INFORMATION
  Report Type: 
  Country: None (occurrence: None)
  Receive Date: 20070413
  Receipt Date: 20070402
  Transmission Date: 20071010
  Serious: Yes (Other)
  Sender: FDA-Public Use
  Company Number: 2007RR-06442

PATIENT
  Age: 70 Year
  Sex: Male

DRUGS (3)
  1. CIPROFLOXACIN [Suspect]
  2. METOPROLOL TARTRATE [Concomitant]
  3. ROFECOXIB [Concomitant]

REACTIONS (5)
  - APHASIA [None]
  - AREFLEXIA [None]
  - COGNITIVE DISORDER [None]
  - GRAND MAL CONVULSION [None]
  - INAPPROPRIATE ANTIDIURETIC HORMONE SECRETION [None]
